FAERS Safety Report 8878610 (Version 1)
Quarter: 2012Q4

REPORT INFORMATION
  Report Type: 
  Country: DE (occurrence: DE)
  Receive Date: 20121030
  Receipt Date: 20121030
  Transmission Date: 20130627
  Serious: Yes (Other)
  Sender: FDA-Public Use
  Company Number: DE-JNJFOC-20121013315

PATIENT
  Age: 91 Year
  Sex: Male
  Weight: 75 kg

DRUGS (8)
  1. XARELTO [Suspect]
     Indication: CEREBROVASCULAR ACCIDENT PROPHYLAXIS
     Route: 065
  2. XARELTO [Suspect]
     Indication: CEREBROVASCULAR ACCIDENT PROPHYLAXIS
     Route: 065
     Dates: start: 20120426
  3. XARELTO [Suspect]
     Indication: ATRIAL FIBRILLATION
     Route: 065
     Dates: start: 20120426
  4. XARELTO [Suspect]
     Indication: ATRIAL FIBRILLATION
     Route: 065
  5. DIGITOXIN [Concomitant]
  6. RAMIPRIL [Concomitant]
     Route: 065
  7. METOPROLOL [Concomitant]
     Route: 065
  8. TORASEMID [Concomitant]
     Route: 065

REACTIONS (9)
  - Cardiac failure congestive [Recovered/Resolved]
  - Tachycardia [Recovered/Resolved]
  - Bradycardia [Recovered/Resolved]
  - Atrial fibrillation [Recovered/Resolved]
  - Blood glucose abnormal [Recovered/Resolved]
  - Renal disorder [Recovered/Resolved]
  - General physical health deterioration [Recovered/Resolved]
  - Influenza [Recovered/Resolved]
  - Oropharyngeal pain [Recovered/Resolved]
